FAERS Safety Report 17796317 (Version 3)
Quarter: 2021Q3

REPORT INFORMATION
  Report Type: Spontaneous
  Country: US (occurrence: US)
  Receive Date: 20200517
  Receipt Date: 20210923
  Transmission Date: 20211014
  Serious: No
  Sender: FDA-Public Use
  Company Number: US-BAUSCH-BL-2020-012673

PATIENT
  Age: 85 Year
  Sex: Female

DRUGS (3)
  1. LATANOPROST. [Suspect]
     Active Substance: LATANOPROST
     Dosage: ONE DROP ONCE DAILY AT BED TIME
     Route: 047
     Dates: start: 20200401, end: 20200425
  2. LATANOPROST. [Suspect]
     Active Substance: LATANOPROST
     Indication: PRODUCT USED FOR UNKNOWN INDICATION
     Dosage: STARTED 3?4 YEARS AGO, ONE DROP ONCE DAILY AT BED TIME
     Route: 047
     Dates: end: 202108
  3. LATANOPROST. [Suspect]
     Active Substance: LATANOPROST
     Dosage: NEW BOTTLE, ONE DROP ONCE DAILY AT BED TIME
     Route: 047
     Dates: start: 20200425

REACTIONS (3)
  - Product quality issue [Unknown]
  - Instillation site irritation [Recovered/Resolved]
  - Instillation site foreign body sensation [Unknown]

NARRATIVE: CASE EVENT DATE: 202004
